FAERS Safety Report 8179558-5 (Version None)
Quarter: 2012Q1

REPORT INFORMATION
  Report Type: 
  Country: None (occurrence: None)
  Receive Date: 20120302
  Receipt Date: 20120220
  Transmission Date: 20120608
  Serious: Yes (Hospitalization, Other)
  Sender: FDA-Public Use
  Company Number: US-BAYER-2012-011715

PATIENT
  Age: 28 Year
  Sex: Female
  Weight: 76.19 kg

DRUGS (21)
  1. DROSPIRENONE AND ETHINYL ESTRADIOL [Suspect]
     Indication: ACNE
  2. YAZ [Suspect]
     Indication: CONTRACEPTION
     Dosage: UNK
     Dates: start: 20080301, end: 20090401
  3. ALBUTEROL [Concomitant]
     Dosage: UNK UNK, PRN
     Dates: start: 20090101, end: 20110101
  4. ADDERALL XR 10 [Concomitant]
     Indication: ATTENTION DEFICIT/HYPERACTIVITY DISORDER
     Dosage: 20 MG, QD
  5. DROSPIRENONE AND ETHINYL ESTRADIOL [Suspect]
     Indication: CONTRACEPTION
     Dosage: UNK
     Dates: start: 20100901, end: 20110301
  6. YAZ [Suspect]
     Indication: PREMENSTRUAL SYNDROME
  7. MULTI-VITAMIN [Concomitant]
     Dosage: DAILY
  8. IBUPROFEN TABLETS [Concomitant]
     Dosage: UNK UNK, PRN
     Dates: start: 20090101
  9. AMOXICILLIN [Concomitant]
     Indication: HELICOBACTER INFECTION
     Dosage: 500 MG, UNK
  10. LORAZEPAM [Concomitant]
     Indication: ANXIETY
     Dosage: 0.5 MG, UNK
  11. PAROXETINE HCL [Concomitant]
     Indication: ANXIETY
     Dosage: 30 MG, QD
     Dates: start: 20070101, end: 20090101
  12. FLONASE [Concomitant]
  13. CLARINEX [Concomitant]
  14. YASMIN [Suspect]
     Indication: ACNE
  15. YASMIN [Suspect]
     Indication: PREMENSTRUAL SYNDROME
  16. RANITIDINE [Concomitant]
  17. YASMIN [Suspect]
     Indication: CONTRACEPTION
     Dosage: UNK
     Dates: start: 20040101, end: 20100101
  18. DROSPIRENONE AND ETHINYL ESTRADIOL [Suspect]
     Indication: PREMENSTRUAL SYNDROME
  19. YAZ [Suspect]
     Indication: ACNE
     Dosage: UNK
     Dates: start: 20091201, end: 20100901
  20. CLARITHROMYCIN [Concomitant]
     Indication: HELICOBACTER INFECTION
     Dosage: 500 MG, UNK
  21. PRILOSEC [Concomitant]
     Indication: GASTROOESOPHAGEAL REFLUX DISEASE
     Dosage: 20 MG, QD

REACTIONS (3)
  - ABDOMINAL PAIN [None]
  - GALLBLADDER DISORDER [None]
  - CHOLECYSTITIS CHRONIC [None]
